FAERS Safety Report 13417522 (Version 2)
Quarter: 2017Q2

REPORT INFORMATION
  Report Type: Spontaneous
  Country: PT (occurrence: PT)
  Receive Date: 20170407
  Receipt Date: 20170525
  Transmission Date: 20170830
  Serious: Yes (Life-Threatening)
  Sender: FDA-Public Use
  Company Number: PT-PFIZER INC-2017146344

PATIENT
  Age: 31 Year
  Sex: Male

DRUGS (6)
  1. CALCIUM LEVOFOLINATE [Concomitant]
     Active Substance: LEVOLEUCOVORIN CALCIUM
     Indication: RECTAL CANCER
     Dosage: FIRST TWO TREATMENT CYCLES
  2. FLUOROURACIL. [Concomitant]
     Active Substance: FLUOROURACIL
     Indication: RECTAL CANCER
     Route: 042
  3. FOLINATO DE CALCIO TEVA [Concomitant]
     Active Substance: LEUCOVORIN CALCIUM
     Indication: RECTAL CANCER
     Dosage: 7TH CYCLE AND ON THE PREVIOUS FOUR CYCLES
     Route: 042
  4. OXALIPLATIN. [Suspect]
     Active Substance: OXALIPLATIN
     Indication: RECTAL CANCER
     Dosage: FIRST CYCLE
  5. OXALIPLATIN. [Suspect]
     Active Substance: OXALIPLATIN
     Dosage: 170 MG, 1X/DAY (7TH CYCLE, IN 250 ML OF GLUCOSE 5% FOR 2H PERFUSION)
     Route: 042
     Dates: start: 20170315, end: 20170315
  6. OXALIPLATIN. [Suspect]
     Active Substance: OXALIPLATIN
     Dosage: PREVIOUS FIVE CYCLES

REACTIONS (2)
  - Hyperhidrosis [Recovered/Resolved]
  - Erythema [Recovered/Resolved]

NARRATIVE: CASE EVENT DATE: 20170315
